FAERS Safety Report 23382002 (Version 1)
Quarter: 2024Q1

REPORT INFORMATION
  Report Type: Spontaneous
  Country: JP (occurrence: JP)
  Receive Date: 20240109
  Receipt Date: 20240109
  Transmission Date: 20240410
  Serious: Yes (Hospitalization)
  Sender: FDA-Public Use
  Company Number: PA2023JP000160

PATIENT
  Age: 72 Year
  Sex: Male

DRUGS (2)
  1. REMIMAZOLAM [Suspect]
     Active Substance: REMIMAZOLAM
     Indication: General anaesthesia
     Dosage: UNK
     Route: 042
  2. ROCURONIUM BROMIDE [Suspect]
     Active Substance: ROCURONIUM BROMIDE
     Indication: Muscle relaxant therapy
     Dosage: UNK
     Route: 042

REACTIONS (2)
  - Cardiac arrest [Recovering/Resolving]
  - Anaphylactic reaction [Recovering/Resolving]
